FAERS Safety Report 6141993-4 (Version None)
Quarter: 2009Q2

REPORT INFORMATION
  Report Type: 
  Country: None (occurrence: None)
  Receive Date: 20090402
  Receipt Date: 20090325
  Transmission Date: 20091009
  Serious: Yes (Hospitalization, Other)
  Sender: FDA-Public Use
  Company Number: PHHY2009ES11102

PATIENT
  Age: 83 Year
  Sex: Male

DRUGS (6)
  1. SINTROM [Suspect]
     Indication: ATRIAL FIBRILLATION
     Dosage: 4 MG
     Route: 048
     Dates: start: 20050101, end: 20080606
  2. DIOVAN [Suspect]
     Indication: HYPERTENSION
     Dosage: UNK
     Dates: start: 20030501, end: 20080606
  3. DIGOXIN [Suspect]
     Indication: ATRIAL FIBRILLATION
     Dosage: UNK
     Dates: start: 19980901
  4. OMEPRAZOL [Suspect]
     Route: 048
  5. COROPRES [Concomitant]
     Indication: BLOOD PRESSURE
     Dosage: UNK
     Dates: start: 20050101
  6. METFORMIN HCL [Concomitant]
     Route: 048

REACTIONS (8)
  - COLONOSCOPY ABNORMAL [None]
  - DIVERTICULUM [None]
  - DIVERTICULUM INTESTINAL [None]
  - GASTROINTESTINAL HAEMORRHAGE [None]
  - INTERNATIONAL NORMALISED RATIO INCREASED [None]
  - LOWER GASTROINTESTINAL HAEMORRHAGE [None]
  - POLYP COLORECTAL [None]
  - POLYPECTOMY [None]
